FAERS Safety Report 15287758 (Version 1)
Quarter: 2018Q3

REPORT INFORMATION
  Report Type: Report from Study
  Country: None (occurrence: CO)
  Receive Date: 20180817
  Receipt Date: 20180817
  Transmission Date: 20181010
  Serious: Yes (Other)
  Sender: FDA-Public Use
  Company Number: CO-ABBVIE-18K-036-2454932-00

PATIENT
  Age: 67 Year
  Sex: Male
  Weight: 64 kg

DRUGS (1)
  1. HUMIRA [Suspect]
     Active Substance: ADALIMUMAB
     Indication: COLITIS ULCERATIVE
     Dosage: LAST APPLICATION WAS ON 26 JUL 2018 DUE TO ADMINISTRATIVE PROBLEMS
     Route: 058
     Dates: start: 20121008, end: 20180726

REACTIONS (3)
  - Colitis ulcerative [Recovering/Resolving]
  - Melaena [Recovering/Resolving]
  - Wrong technique in product usage process [Unknown]

NARRATIVE: CASE EVENT DATE: 20180701
